FAERS Safety Report 23325676 (Version 2)
Quarter: 2024Q1

REPORT INFORMATION
  Report Type: Other
  Country: JP (occurrence: None)
  Receive Date: 20231221
  Receipt Date: 20240105
  Transmission Date: 20240410
  Serious: Yes (Death, Hospitalization, Other)
  Sender: FDA-Public Use
  Company Number: JP-ROCHE-3477603

PATIENT
  Age: 76 Year
  Sex: Female

DRUGS (2)
  1. RITUXAN [Suspect]
     Active Substance: RITUXIMAB
     Indication: Mantle cell lymphoma
     Route: 041
  2. MOLNUPIRAVIR [Concomitant]
     Active Substance: MOLNUPIRAVIR

REACTIONS (5)
  - SARS-CoV-2 viraemia [Fatal]
  - Necrotising retinitis [Unknown]
  - Blood immunoglobulin G decreased [Unknown]
  - CD4 lymphocytes decreased [Unknown]
  - Blood immunoglobulin M decreased [Unknown]
